FAERS Safety Report 5215706-4 (Version None)
Quarter: 2007Q1

REPORT INFORMATION
  Report Type: 
  Country: None (occurrence: None)
  Receive Date: 20070117
  Receipt Date: 20070116
  Transmission Date: 20070707
  Serious: Yes (Death)
  Sender: FDA-Public Use
  Company Number: FRWYE802311DEC06

PATIENT
  Age: 34 Year
  Sex: Male

DRUGS (3)
  1. TYGACIL [Suspect]
     Indication: CHOLANGITIS SUPPURATIVE
     Dosage: 100 MG LOADING DOSE THEN 25 MG TWICE DAILY INTRAVENOUS
     Route: 042
     Dates: start: 20061206, end: 20061201
  2. TYGACIL [Suspect]
     Indication: ENTEROCOCCAL INFECTION
     Dosage: 100 MG LOADING DOSE THEN 25 MG TWICE DAILY INTRAVENOUS
     Route: 042
     Dates: start: 20061206, end: 20061201
  3. TYGACIL [Suspect]
     Indication: PSEUDOMONAS INFECTION
     Dosage: 100 MG LOADING DOSE THEN 25 MG TWICE DAILY INTRAVENOUS
     Route: 042
     Dates: start: 20061206, end: 20061201

REACTIONS (1)
  - HYPOGLYCAEMIA [None]
